FAERS Safety Report 14600482 (Version 1)
Quarter: 2018Q1

REPORT INFORMATION
  Report Type: Spontaneous
  Country: DE (occurrence: DE)
  Receive Date: 20180305
  Receipt Date: 20180305
  Transmission Date: 20180509
  Serious: Yes (Death)
  Sender: FDA-Public Use
  Company Number: DE-CHIESI USA INC.-DE-2018CHI000048

PATIENT
  Sex: Female
  Weight: 1.7 kg

DRUGS (3)
  1. CUROSURF [Suspect]
     Active Substance: PORACTANT ALFA
     Indication: NEONATAL RESPIRATORY DISTRESS SYNDROME
     Dosage: 480 MG, TOTAL
     Route: 007
  2. BUDESONID [Concomitant]
     Active Substance: BUDESONIDE
     Indication: NEONATAL RESPIRATORY DISTRESS SYNDROME
     Dosage: 0.1 MG, QD
  3. ILOPROST. [Concomitant]
     Active Substance: ILOPROST
     Indication: NEONATAL RESPIRATORY DISTRESS SYNDROME
     Dosage: 3 ?G, QD

REACTIONS (1)
  - Drug ineffective [Fatal]
